FAERS Safety Report 7751343-5 (Version None)
Quarter: 2011Q3

REPORT INFORMATION
  Report Type: 
  Country: None (occurrence: None)
  Receive Date: 20110914
  Receipt Date: 20110907
  Transmission Date: 20111222
  Serious: Yes (Other)
  Sender: FDA-Public Use
  Company Number: JP-PFIZER INC-2011208781

PATIENT
  Age: 57 Year
  Sex: Male

DRUGS (3)
  1. ZOLOFT [Suspect]
     Dosage: 75 MG
  2. PAROXETINE [Concomitant]
     Indication: MAJOR DEPRESSION
     Dosage: 40 MG
  3. ZOLOFT [Suspect]
     Indication: MAJOR DEPRESSION
     Dosage: 50 MG

REACTIONS (2)
  - OBSESSIVE THOUGHTS [None]
  - PRIAPISM [None]
